FAERS Safety Report 13287007 (Version 3)
Quarter: 2018Q4

REPORT INFORMATION
  Report Type: Spontaneous
  Country: DE (occurrence: DE)
  Receive Date: 20170302
  Receipt Date: 20181002
  Transmission Date: 20190204
  Serious: Yes (Hospitalization, Other)
  Sender: FDA-Public Use
  Company Number: DE-BAYER-2017-036383

PATIENT
  Age: 61 Year
  Sex: Female
  Weight: 75.1 kg

DRUGS (3)
  1. GADOVIST [Suspect]
     Active Substance: GADOBUTROL
     Indication: NUCLEAR MAGNETIC RESONANCE IMAGING ABDOMINAL
     Dosage: 8 ML, ONCE ; IN TOTAL
     Route: 042
     Dates: start: 20161221, end: 20161221
  2. GADOVIST [Suspect]
     Active Substance: GADOBUTROL
     Indication: ABDOMINAL PAIN UPPER
  3. GADOVIST [Suspect]
     Active Substance: GADOBUTROL
     Indication: ABDOMINAL PAIN UPPER

REACTIONS (35)
  - Muscular weakness [Recovering/Resolving]
  - Inflammation [Recovering/Resolving]
  - Nervousness [Recovering/Resolving]
  - Myalgia [Recovering/Resolving]
  - Fatigue [Recovering/Resolving]
  - Heart rate increased [Recovering/Resolving]
  - Sleep disorder [Recovering/Resolving]
  - Dizziness [Recovering/Resolving]
  - Asthenia [Recovering/Resolving]
  - Arthralgia [Recovering/Resolving]
  - Nontherapeutic agent urine positive [Recovering/Resolving]
  - Hepatic fibrosis [Unknown]
  - Chills [Recovering/Resolving]
  - Nausea [Recovering/Resolving]
  - Toxicity to various agents [Recovering/Resolving]
  - Skin burning sensation [Recovering/Resolving]
  - Pruritus [Recovering/Resolving]
  - Musculoskeletal chest pain [Recovering/Resolving]
  - Myocardial necrosis marker increased [Recovering/Resolving]
  - Aspartate aminotransferase increased [Recovering/Resolving]
  - Muscle spasms [Recovering/Resolving]
  - Vertigo [Recovering/Resolving]
  - Paraesthesia [Recovering/Resolving]
  - Flatulence [Recovering/Resolving]
  - Gamma-glutamyltransferase increased [Recovering/Resolving]
  - Headache [Recovering/Resolving]
  - Muscle twitching [Recovering/Resolving]
  - Disturbance in attention [Recovering/Resolving]
  - Abdominal pain [Recovering/Resolving]
  - Tinnitus [Recovering/Resolving]
  - Contrast media deposition [Recovering/Resolving]
  - Nontherapeutic agent blood positive [Recovering/Resolving]
  - Stool heavy metal positive [None]
  - C-reactive protein increased [Recovering/Resolving]
  - Abdominal pain upper [Recovering/Resolving]

NARRATIVE: CASE EVENT DATE: 201612
